FAERS Safety Report 5866609-3 (Version None)
Quarter: 2008Q3

REPORT INFORMATION
  Report Type: 
  Country: None (occurrence: None)
  Receive Date: 20080829
  Receipt Date: 20080829
  Transmission Date: 20090109
  Serious: Yes (Other)
  Sender: FDA-Public Use
  Company Number: None

PATIENT
  Age: 43 Year
  Sex: Female
  Weight: 125.1928 kg

DRUGS (1)
  1. VANCOMYCIN [Suspect]
     Indication: PREOPERATIVE CARE
     Dosage: IV 1 GRAM X 1 VANCOMYCIN 1 GRAM L HAND IV 228
     Route: 042
     Dates: start: 20080827

REACTIONS (3)
  - ERYTHEMA [None]
  - INFUSION SITE RASH [None]
  - PAIN IN EXTREMITY [None]
